FAERS Safety Report 25603487 (Version 1)
Quarter: 2025Q3

REPORT INFORMATION
  Report Type: Spontaneous
  Country: GB (occurrence: GB)
  Receive Date: 20250724
  Receipt Date: 20250724
  Transmission Date: 20251020
  Serious: Yes (Other)
  Sender: ORGANON
  Company Number: None

PATIENT
  Age: 69 Year
  Sex: Male
  Weight: 82 kg

DRUGS (5)
  1. EZETIMIBE [Suspect]
     Active Substance: EZETIMIBE
     Dosage: ONE TO BE TAKEN EACH DAY
     Dates: start: 20250303, end: 20250324
  2. ROSUVASTATIN [Concomitant]
     Active Substance: ROSUVASTATIN
     Dosage: ONE TO BE TAKEN EACH DAY
     Dates: start: 20250423, end: 20250715
  3. VIBEGRON [Concomitant]
     Active Substance: VIBEGRON
     Indication: Hypertonic bladder
     Dosage: ONE TO BE TAKEN ONCE DAILY
     Dates: start: 20250604
  4. CIPROFLOXACIN [Concomitant]
     Active Substance: CIPROFLOXACIN
     Dosage: ONE TO BE TAKEN TWICE A DAY
     Dates: start: 20250605, end: 20250704
  5. BEMPEDOIC ACID [Concomitant]
     Active Substance: BEMPEDOIC ACID
     Dosage: ONE TO BE TAKEN ONCE DAILY

REACTIONS (1)
  - Coagulopathy [Recovered/Resolved]
